FAERS Safety Report 4854198-1 (Version None)
Quarter: 2005Q4

REPORT INFORMATION
  Report Type: 
  Country: None (occurrence: None)
  Receive Date: 20051213
  Receipt Date: 20051130
  Transmission Date: 20060501
  Serious: Yes (Hospitalization)
  Sender: FDA-Public Use
  Company Number: 2005162994

PATIENT
  Age: 84 Year
  Sex: Male

DRUGS (5)
  1. DETROL LA [Suspect]
     Indication: HYPERTONIC BLADDER
     Dosage: 4 MG (4 MG, 1 IN 1 D), ORAL
     Route: 048
     Dates: start: 20050714
  2. PROTONIX [Concomitant]
  3. MULTIVITAMIN [Concomitant]
  4. LEVOTHYROXINE SODIUM [Concomitant]
  5. COLACE (DOCUSATE SODIUM) [Concomitant]

REACTIONS (9)
  - CONFUSIONAL STATE [None]
  - DRY EYE [None]
  - DYSURIA [None]
  - EYE PRURITUS [None]
  - JOINT SWELLING [None]
  - MICTURITION URGENCY [None]
  - OCULAR HYPERAEMIA [None]
  - PRURITUS [None]
  - RASH GENERALISED [None]
